FAERS Safety Report 14210638 (Version 3)
Quarter: 2018Q1

REPORT INFORMATION
  Report Type: Spontaneous
  Country: JP (occurrence: JP)
  Receive Date: 20171121
  Receipt Date: 20180212
  Transmission Date: 20180508
  Serious: Yes (Death, Life-Threatening, Hospitalization, Disabling, Other)
  Sender: FDA-Public Use
  Company Number: JP-009507513-1711JPN001330J

PATIENT
  Age: 72 Year
  Sex: Female
  Weight: 45 kg

DRUGS (3)
  1. KEYTRUDA [Suspect]
     Active Substance: PEMBROLIZUMAB
     Indication: LUNG ADENOCARCINOMA
     Dosage: 200 MG, UNK
     Route: 041
     Dates: start: 20171016, end: 20171016
  2. DEXAMETHASONE. [Concomitant]
     Active Substance: DEXAMETHASONE
     Dosage: UNK
     Route: 048
  3. ISOSORBIDE. [Concomitant]
     Active Substance: ISOSORBIDE
     Dosage: UNK
     Route: 048

REACTIONS (6)
  - Dizziness [Not Recovered/Not Resolved]
  - Device related infection [Not Recovered/Not Resolved]
  - Neutrophil count decreased [Recovering/Resolving]
  - Cytomegalovirus infection [Recovering/Resolving]
  - Nausea [Not Recovered/Not Resolved]
  - Altered state of consciousness [Fatal]

NARRATIVE: CASE EVENT DATE: 20171017
